FAERS Safety Report 8963266 (Version 1)
Quarter: 2012Q4

REPORT INFORMATION
  Report Type: 
  Country: JP (occurrence: JP)
  Receive Date: 20121214
  Receipt Date: 20121214
  Transmission Date: 20130627
  Serious: Yes (Other)
  Sender: FDA-Public Use
  Company Number: JP-EISAI INC-E3810-06124-SPO-JP

PATIENT
  Sex: Female

DRUGS (9)
  1. PARIET (RABEPRAZOLE) [Suspect]
     Dosage: UNKNOWN
     Route: 048
  2. LYRICA [Suspect]
     Indication: PROCEDURAL PAIN
     Route: 048
  3. LYRICA [Suspect]
     Route: 048
  4. LYRICA [Suspect]
     Route: 048
     Dates: start: 201107
  5. TRAMCET [Suspect]
     Dosage: UNKNOWN
     Route: 048
  6. AMLODIPINE [Concomitant]
     Route: 048
  7. TANATRIL [Concomitant]
     Route: 048
  8. METHYCOBAL [Concomitant]
     Route: 065
  9. MERISLON [Concomitant]
     Route: 048

REACTIONS (1)
  - Pancreatitis chronic [Unknown]
